FAERS Safety Report 12372250 (Version 3)
Quarter: 2016Q2

REPORT INFORMATION
  Report Type: Report from Study
  Country: CA (occurrence: CA)
  Receive Date: 20160516
  Receipt Date: 20160617
  Transmission Date: 20160815
  Serious: Yes (Death)
  Sender: FDA-Public Use
  Company Number: CA-HLSUS-2016-CA-000132

PATIENT
  Age: 68 Year
  Sex: Male
  Weight: 98.5 kg

DRUGS (8)
  1. CLONAZEPAM. [Concomitant]
     Active Substance: CLONAZEPAM
     Dosage: 1 TABLET ORLLY TWICE DAILY
     Route: 048
  2. RESPERIDONE [Concomitant]
     Active Substance: RISPERIDONE
     Dosage: 1 TABLET AT BEDTIME
  3. BISACODYL. [Concomitant]
     Active Substance: BISACODYL
     Dosage: 4 TABLETS AT BEDTIME
  4. BENZTROPINE [Concomitant]
     Active Substance: BENZTROPINE
     Dosage: 2MG 1 TABLET ORALLY AT BEDTIME
     Route: 048
  5. GABAPENTIN. [Concomitant]
     Active Substance: GABAPENTIN
     Dosage: 300 MG 2 CAPSULES ORALLY TID
     Route: 048
  6. SENNA LAXATIVE [Concomitant]
     Active Substance: SENNOSIDES
     Dosage: 8.6MG 1TO2 TABLETS TWICE DAILY
  7. CLOZARIL [Suspect]
     Active Substance: CLOZAPINE
     Dosage: 100MG THREE TABLETS AT BEDTIME
     Route: 048
     Dates: start: 2016
  8. PANTOPRAZOLE SODIUM. [Concomitant]
     Active Substance: PANTOPRAZOLE SODIUM
     Dosage: 1 TABLET ORALLY ONCE DAILY
     Route: 048

REACTIONS (1)
  - Myocardial infarction [Fatal]

NARRATIVE: CASE EVENT DATE: 20160511
